FAERS Safety Report 20800478 (Version 1)
Quarter: 2022Q2

REPORT INFORMATION
  Report Type: Spontaneous
  Country: US (occurrence: US)
  Receive Date: 20220509
  Receipt Date: 20220509
  Transmission Date: 20220721
  Serious: Yes (Other)
  Sender: FDA-Public Use
  Company Number: US-JNJFOC-20220512129

PATIENT
  Age: 6 Decade
  Sex: Female
  Weight: 103.51 kg

DRUGS (2)
  1. STELARA [Suspect]
     Active Substance: USTEKINUMAB
     Indication: Gastrointestinal inflammation
     Route: 058
     Dates: start: 20210914
  2. STELARA [Suspect]
     Active Substance: USTEKINUMAB
     Indication: Colitis

REACTIONS (1)
  - Bladder cancer recurrent [Unknown]

NARRATIVE: CASE EVENT DATE: 20220401
